FAERS Safety Report 10225051 (Version 1)
Quarter: 2014Q2

REPORT INFORMATION
  Report Type: Spontaneous
  Country: DE (occurrence: DE)
  Receive Date: 20140609
  Receipt Date: 20140609
  Transmission Date: 20141212
  Serious: Yes (Hospitalization)
  Sender: FDA-Public Use
  Company Number: PHHY2014DE067882

PATIENT
  Age: 75 Year
  Sex: Male

DRUGS (13)
  1. DIOVAN [Suspect]
     Dosage: 320 MG, PER DAY
     Route: 048
  2. XIPAMIDE [Suspect]
     Dosage: 20 MG, PER DAY
     Route: 048
  3. REMERGIL [Suspect]
     Dosage: 15 TO 45 MG PER DAY
     Route: 048
     Dates: start: 20120530
  4. REMERGIL [Suspect]
     Dosage: 45 MG, PER DAY
     Route: 048
  5. PANTOZOL [Suspect]
     Dosage: 40 MG, PER DAY
     Route: 048
  6. DEKRISTOL [Concomitant]
     Dosage: 20000 IU, PER DAY
     Route: 048
     Dates: start: 20120528, end: 20120604
  7. BISOPROLOL [Concomitant]
     Dosage: 7.5 TO 5 MG PER DAY
     Route: 048
  8. SIMVASTATIN [Concomitant]
     Dosage: 40 MG, PER DAY
     Route: 048
  9. DOXACOR [Concomitant]
     Dosage: 4 MG, PER DAY
     Route: 048
  10. ALLOPURINOL [Concomitant]
     Dosage: 150 MG, PER DAY
     Route: 048
  11. ASS [Concomitant]
     Dosage: 100 MG, PER DAY
     Route: 048
  12. CALCILAC//CALCIUM LACTATE [Concomitant]
     Dosage: 1250 MG, PER DAY
     Route: 048
     Dates: end: 20120604
  13. MCP//METOCLOPRAMIDE HYDROCHLORIDE [Concomitant]
     Dosage: 25 MG, PER DAY
     Route: 048
     Dates: start: 20120526, end: 20120604

REACTIONS (1)
  - Hyponatraemia [Recovered/Resolved]
